FAERS Safety Report 17011578 (Version 1)
Quarter: 2019Q4

REPORT INFORMATION
  Report Type: Spontaneous
  Country: US (occurrence: US)
  Receive Date: 20191108
  Receipt Date: 20191108
  Transmission Date: 20200122
  Serious: Yes (Hospitalization)
  Sender: FDA-Public Use
  Company Number: US-ENDO PHARMACEUTICALS INC-2019-109487

PATIENT
  Age: 73 Year
  Sex: Female

DRUGS (1)
  1. BACLOFEN. [Suspect]
     Active Substance: BACLOFEN
     Indication: MUSCULOSKELETAL PAIN
     Dosage: 10 MG, TID
     Route: 065

REACTIONS (3)
  - Coma [Recovered/Resolved]
  - Toxicity to various agents [Recovered/Resolved]
  - Hypertension [Recovered/Resolved]
